FAERS Safety Report 15601445 (Version 1)
Quarter: 2018Q4

REPORT INFORMATION
  Report Type: Spontaneous
  Country: CA (occurrence: CA)
  Receive Date: 20181109
  Receipt Date: 20181109
  Transmission Date: 20190205
  Serious: Yes (Other)
  Sender: FDA-Public Use
  Company Number: CA-PURDUE PHARMA-CAN-2018-0009193

PATIENT
  Age: 64 Year
  Sex: Female

DRUGS (2)
  1. OXYCODONE HYDROCHLORIDE. [Suspect]
     Active Substance: OXYCODONE HYDROCHLORIDE
     Indication: PAIN
     Dosage: UNK
     Route: 065
  2. PREDNISONE. [Suspect]
     Active Substance: PREDNISONE
     Indication: PRODUCT USED FOR UNKNOWN INDICATION
     Dosage: UNK, PRN
     Route: 065

REACTIONS (9)
  - Neoplasm malignant [Unknown]
  - Rib fracture [Unknown]
  - Impaired driving ability [Unknown]
  - Condition aggravated [Unknown]
  - Muscle spasms [Unknown]
  - Tendon disorder [Unknown]
  - Drug effect incomplete [Unknown]
  - Disease recurrence [Unknown]
  - Joint swelling [Unknown]
